FAERS Safety Report 7463306-8 (Version None)
Quarter: 2011Q2

REPORT INFORMATION
  Report Type: 
  Country: None (occurrence: None)
  Receive Date: 20110506
  Receipt Date: 20110427
  Transmission Date: 20111010
  Serious: Yes (Hospitalization)
  Sender: FDA-Public Use
  Company Number: US-PFIZER INC-2010166460

PATIENT
  Sex: Female
  Weight: 91.1 kg

DRUGS (13)
  1. CLONIDINE [Concomitant]
     Dosage: UNK
     Route: 048
     Dates: start: 20090505
  2. METFORMIN [Concomitant]
     Dosage: UNK
     Route: 048
     Dates: start: 20090505
  3. LOTREL [Concomitant]
     Dosage: UNK
     Route: 048
     Dates: start: 20050101
  4. ZYRTEC [Concomitant]
     Dosage: UNK
     Route: 048
     Dates: start: 20000101
  5. CALCIUM [Concomitant]
     Dosage: UNK
     Route: 048
     Dates: start: 20060801
  6. GLUCOTROL [Concomitant]
     Dosage: UNK
     Route: 048
     Dates: start: 20090505
  7. FUROSEMIDE [Concomitant]
     Dosage: UNK
     Route: 048
     Dates: start: 20040101
  8. BENAZEPRIL [Concomitant]
     Dosage: UNK
     Route: 048
     Dates: start: 20080415
  9. NORVASC [Concomitant]
     Dosage: UNK
     Route: 048
     Dates: start: 20080415
  10. CENTRUM [Concomitant]
     Dosage: UNK
     Route: 048
     Dates: start: 19870101
  11. IBUPROFEN [Suspect]
     Indication: RHEUMATOID ARTHRITIS
  12. ALBUTEROL SULFATE [Concomitant]
     Dosage: UNK
     Route: 055
     Dates: start: 20000101
  13. IBUPROFEN [Suspect]
     Indication: OSTEOARTHRITIS
     Dosage: 600 MG, 3X/DAY
     Route: 048
     Dates: start: 20070907, end: 20101020

REACTIONS (2)
  - COLONIC POLYP [None]
  - COLECTOMY [None]
